FAERS Safety Report 5173821-8 (Version None)
Quarter: 2006Q4

REPORT INFORMATION
  Report Type: 
  Country: None (occurrence: None)
  Receive Date: 20061214
  Receipt Date: 20061121
  Transmission Date: 20070319
  Serious: Yes (Hospitalization)
  Sender: FDA-Public Use
  Company Number: FR-GLAXOSMITHKLINE-B0447573A

PATIENT
  Sex: Female

DRUGS (7)
  1. RETROVIR [Suspect]
     Indication: ANTIVIRAL PROPHYLAXIS
     Dosage: .6ML FOUR TIMES PER DAY
     Route: 048
     Dates: start: 20050912, end: 20051010
  2. MORPHIN CHLORHYDRATE [Suspect]
     Route: 048
     Dates: start: 20050915, end: 20051114
  3. EPIVIR [Concomitant]
     Indication: DRUG EXPOSURE DURING PREGNANCY
  4. ROHYPNOL [Concomitant]
     Indication: DRUG EXPOSURE DURING PREGNANCY
  5. SUBUTEX [Concomitant]
     Indication: DRUG EXPOSURE DURING PREGNANCY
  6. ZERIT [Concomitant]
     Indication: DRUG EXPOSURE DURING PREGNANCY
  7. VIRACEPT [Concomitant]
     Indication: DRUG EXPOSURE DURING PREGNANCY

REACTIONS (13)
  - CAESAREAN SECTION [None]
  - DEPRESSED LEVEL OF CONSCIOUSNESS [None]
  - DRUG EXPOSURE DURING PREGNANCY [None]
  - DRUG WITHDRAWAL SYNDROME [None]
  - DRUG WITHDRAWAL SYNDROME NEONATAL [None]
  - ELECTROENCEPHALOGRAM ABNORMAL [None]
  - FEEDING DISORDER NEONATAL [None]
  - HYPERTONIA NEONATAL [None]
  - HYPERVENTILATION [None]
  - HYPOTONIA [None]
  - HYPOTONIA NEONATAL [None]
  - NEONATAL DISORDER [None]
  - VIRAL INFECTION [None]
